FAERS Safety Report 8608214-1 (Version None)
Quarter: 2012Q3

REPORT INFORMATION
  Report Type: 
  Country: None (occurrence: None)
  Receive Date: 20120821
  Receipt Date: 20120814
  Transmission Date: 20120928
  Serious: Yes (Other)
  Sender: FDA-Public Use
  Company Number: US-PFIZER INC-2012199476

PATIENT
  Sex: Male

DRUGS (2)
  1. LYRICA [Suspect]
     Dosage: 1 DF, 2X/DAY
  2. LYRICA [Suspect]
     Dosage: 1 DF, 1X/DAY

REACTIONS (2)
  - CATARACT [None]
  - BLINDNESS UNILATERAL [None]
